FAERS Safety Report 7156805-X (Version None)
Quarter: 2010Q4

REPORT INFORMATION
  Report Type: 
  Country: None (occurrence: None)
  Receive Date: 20101214
  Receipt Date: 20101129
  Transmission Date: 20110411
  Serious: No
  Sender: FDA-Public Use
  Company Number: US-PFIZER INC-2010160632

PATIENT

DRUGS (1)
  1. ADVIL [Suspect]

REACTIONS (1)
  - SWELLING FACE [None]
